FAERS Safety Report 12423869 (Version 1)
Quarter: 2016Q2

REPORT INFORMATION
  Report Type: Spontaneous
  Country: US (occurrence: US)
  Receive Date: 20160601
  Receipt Date: 20160601
  Transmission Date: 20160815
  Serious: No
  Sender: FDA-Public Use
  Company Number: US-NOVEN PHARMACEUTICALS, INC.-US2016000321

PATIENT

DRUGS (3)
  1. DAYTRANA [Suspect]
     Active Substance: METHYLPHENIDATE
     Indication: ATTENTION DEFICIT/HYPERACTIVITY DISORDER
     Dosage: 10 MG, UNKNOWN
     Route: 062
     Dates: start: 2014
  2. DAYTRANA [Suspect]
     Active Substance: METHYLPHENIDATE
     Dosage: 15 MG (CUTTING ONE 10MG PATCH INTO HALF AND USING IT WITH ANOTHER 10MG PATCH), UNKNOWN
     Route: 062
     Dates: start: 201602
  3. DAYTRANA [Suspect]
     Active Substance: METHYLPHENIDATE
     Dosage: 15 MG, UNKNOWN
     Route: 062
     Dates: end: 201602

REACTIONS (4)
  - Wrong technique in product usage process [Not Recovered/Not Resolved]
  - Disturbance in attention [Recovered/Resolved]
  - Off label use [Not Recovered/Not Resolved]
  - Drug ineffective [Recovered/Resolved]

NARRATIVE: CASE EVENT DATE: 201602
